FAERS Safety Report 16975588 (Version 3)
Quarter: 2019Q4

REPORT INFORMATION
  Report Type: Spontaneous
  Country: JP (occurrence: JP)
  Receive Date: 20191030
  Receipt Date: 20191213
  Transmission Date: 20200122
  Serious: Yes (Hospitalization, Other)
  Sender: FDA-Public Use
  Company Number: JP-BAUSCH-BL-2019-059446

PATIENT
  Age: 77 Year
  Sex: Female

DRUGS (4)
  1. MIKELAN OPHTHALMIC SOLUTION 2 PERCENT [Suspect]
     Active Substance: CARTEOLOL HYDROCHLORIDE
     Indication: GLAUCOMA
     Dosage: ONE TO TWO DROPS FOR BOTH EYES
     Route: 047
     Dates: start: 20031206, end: 20191128
  2. AZOPT [Suspect]
     Active Substance: BRINZOLAMIDE
     Indication: GLAUCOMA
     Dosage: ONE TO TWO DROP FOR BOTH EYES
     Route: 047
     Dates: start: 20040109, end: 20191020
  3. AZOPT [Suspect]
     Active Substance: BRINZOLAMIDE
     Dosage: ONE TO TWO DROP FOR BOTH EYES
     Route: 047
     Dates: start: 20191125
  4. XALATAN [Concomitant]
     Active Substance: LATANOPROST
     Indication: PRODUCT USED FOR UNKNOWN INDICATION
     Dosage: BOTH EYES
     Route: 047
     Dates: start: 20030924, end: 20191128

REACTIONS (3)
  - Dysuria [Recovering/Resolving]
  - Sepsis [Recovering/Resolving]
  - Urinary retention [Recovering/Resolving]

NARRATIVE: CASE EVENT DATE: 201908
